FAERS Safety Report 8539749-8 (Version None)
Quarter: 2012Q3

REPORT INFORMATION
  Report Type: 
  Country: None (occurrence: None)
  Receive Date: 20120726
  Receipt Date: 20120127
  Transmission Date: 20120928
  Serious: No
  Sender: FDA-Public Use
  Company Number: US-ASTRAZENECA-2010SE14519

PATIENT
  Age: 50 Year
  Sex: Male
  Weight: 81.6 kg

DRUGS (7)
  1. LIPITOR [Concomitant]
  2. LOVAZA [Concomitant]
  3. SEROQUEL [Suspect]
     Route: 048
  4. LEVOTHYROXINE SODIUM [Concomitant]
  5. ATENOLOL [Concomitant]
  6. SEROQUEL [Suspect]
     Indication: INSOMNIA
     Route: 048
     Dates: start: 20070101
  7. SEROQUEL [Suspect]
     Route: 048

REACTIONS (8)
  - SEDATION [None]
  - HANGOVER [None]
  - TACHYPHRENIA [None]
  - DIZZINESS [None]
  - PAIN IN EXTREMITY [None]
  - DRUG DOSE OMISSION [None]
  - BACK PAIN [None]
  - INSOMNIA [None]
